FAERS Safety Report 6659579-1 (Version None)
Quarter: 2010Q1

REPORT INFORMATION
  Report Type: 
  Country: None (occurrence: None)
  Receive Date: 20100330
  Receipt Date: 20090819
  Transmission Date: 20100710
  Serious: Yes (Hospitalization, Other)
  Sender: FDA-Public Use
  Company Number: PHHY2009TW61027

PATIENT

DRUGS (3)
  1. EXJADE [Suspect]
     Dosage: 10 TABLETS, UNK
     Route: 048
  2. EXJADE [Suspect]
     Dosage: 10 TABLETS, UNK
     Route: 048
  3. EXJADE [Suspect]
     Dosage: 08 TABLETS, UNK
     Route: 048

REACTIONS (8)
  - ALANINE AMINOTRANSFERASE INCREASED [None]
  - ASPARTATE AMINOTRANSFERASE INCREASED [None]
  - CATHETERISATION CARDIAC [None]
  - DIARRHOEA [None]
  - FATIGUE [None]
  - HYPERTROPHIC CARDIOMYOPATHY [None]
  - MYOCARDIAL CALCIFICATION [None]
  - PRURITUS [None]
